FAERS Safety Report 5749244-7 (Version None)
Quarter: 2008Q2

REPORT INFORMATION
  Report Type: 
  Country: None (occurrence: None)
  Receive Date: 20080521
  Receipt Date: 20080521
  Transmission Date: 20081010
  Serious: Yes (Other)
  Sender: FDA-Public Use
  Company Number: None

PATIENT
  Age: 13 Year
  Sex: Female
  Weight: 88 kg

DRUGS (2)
  1. ACYCLOVIR SODIUM [Suspect]
     Indication: ENCEPHALITIS
     Dosage: 1758 MG Q8H IV
     Route: 042
     Dates: start: 20080514, end: 20080516
  2. VANCOMYCIN [Suspect]
     Indication: ENCEPHALITIS
     Dosage: 1000 MG Q12H IV
     Route: 042
     Dates: start: 20080514, end: 20080515

REACTIONS (1)
  - AZOTAEMIA [None]
